FAERS Safety Report 19437159 (Version 2)
Quarter: 2021Q2

REPORT INFORMATION
  Report Type: Report from Study
  Country: US (occurrence: US)
  Receive Date: 20210618
  Receipt Date: 20210630
  Transmission Date: 20210717
  Serious: Yes (Life-Threatening)
  Sender: FDA-Public Use
  Company Number: US-ALLERGAN-2122913US

PATIENT
  Sex: Female

DRUGS (4)
  1. CYCLOSPORINE 0.5MG/ML EML (9054X) [Suspect]
     Active Substance: CYCLOSPORINE
     Indication: DRY EYE
     Dosage: 2 GTT, BID
     Route: 047
     Dates: start: 20210427, end: 20210611
  2. COSOPT [Interacting]
     Active Substance: DORZOLAMIDE HYDROCHLORIDE\TIMOLOL MALEATE
     Dosage: UNK
     Dates: end: 20210611
  3. COSOPT [Interacting]
     Active Substance: DORZOLAMIDE HYDROCHLORIDE\TIMOLOL MALEATE
     Indication: GLAUCOMA
     Dosage: UNK
     Dates: start: 20210612
  4. TACROLIMUS. [Concomitant]
     Active Substance: TACROLIMUS
     Indication: ECZEMA EYELIDS
     Dosage: UNK
     Dates: start: 20210427

REACTIONS (12)
  - Potentiating drug interaction [Unknown]
  - Eye pain [Recovered/Resolved]
  - Pain [Not Recovered/Not Resolved]
  - Nasal congestion [Recovered/Resolved]
  - Drug ineffective [Unknown]
  - Feeling abnormal [Recovered/Resolved]
  - Dental discomfort [Recovered/Resolved]
  - Pain in extremity [Not Recovered/Not Resolved]
  - Eczema [Not Recovered/Not Resolved]
  - Eye irritation [Recovered/Resolved]
  - Nausea [Not Recovered/Not Resolved]
  - Gingival discomfort [Recovered/Resolved]

NARRATIVE: CASE EVENT DATE: 2021
